FAERS Safety Report 6212265-4 (Version None)
Quarter: 2009Q2

REPORT INFORMATION
  Report Type: 
  Country: None (occurrence: None)
  Receive Date: 20090529
  Receipt Date: 20090514
  Transmission Date: 20091009
  Serious: Yes (Hospitalization)
  Sender: FDA-Public Use
  Company Number: ADE#  09-219DPR

PATIENT
  Sex: Male

DRUGS (3)
  1. DIGOXIN [Suspect]
     Indication: HEART RATE IRREGULAR
     Dosage: ONE TABLET DAILY
     Dates: start: 20081101, end: 20090201
  2. PARKINSON'S MEDS [Concomitant]
  3. LASIX [Concomitant]

REACTIONS (9)
  - ANOREXIA [None]
  - ATRIAL FIBRILLATION [None]
  - FATIGUE [None]
  - HALLUCINATION [None]
  - LETHARGY [None]
  - NAUSEA [None]
  - NERVOUSNESS [None]
  - RENAL FAILURE [None]
  - RESPIRATORY ARREST [None]
